FAERS Safety Report 15355601 (Version 1)
Quarter: 2018Q3

REPORT INFORMATION
  Report Type: Spontaneous
  Country: US (occurrence: US)
  Receive Date: 20180830
  Receipt Date: 20180830
  Transmission Date: 20181010
  Serious: Yes (Life-Threatening)
  Sender: FDA-Public Use
  Company Number: None

PATIENT
  Age: 34 Year
  Sex: Male
  Weight: 128.25 kg

DRUGS (2)
  1. AZITHROMYCIN ANHYDROUS. [Suspect]
     Active Substance: AZITHROMYCIN ANHYDROUS
     Indication: INFECTION
     Dosage: ?          QUANTITY:6 TABLET(S);?
     Route: 048
     Dates: start: 20180826, end: 20180829
  2. LEVORTHOREXIN [Concomitant]

REACTIONS (1)
  - Palpitations [None]

NARRATIVE: CASE EVENT DATE: 20180827
